FAERS Safety Report 6317147-5 (Version None)
Quarter: 2009Q3

REPORT INFORMATION
  Report Type: 
  Country: None (occurrence: None)
  Receive Date: 20090812
  Receipt Date: 20090804
  Transmission Date: 20100115
  Serious: Yes (Other)
  Sender: FDA-Public Use
  Company Number: THYM-1001115

PATIENT
  Age: 2 Year
  Sex: Female
  Weight: 13 kg

DRUGS (6)
  1. THYMOGLOBULIN (ANTI-THYMOCYTE GLOBULIN (RABBIT)) [Suspect]
     Indication: LIVER TRANSPLANT REJECTION
     Dosage: 25 MG, QD, INTRAVENOUS
     Route: 042
     Dates: start: 20090703, end: 20090705
  2. SEPTRA [Concomitant]
  3. PROCHLORPERAZINE MALEATE [Concomitant]
  4. VALCYTE [Concomitant]
  5. PENICILLIN (PHENOXYMETHYLPENICILLIN BENZATHINE) [Concomitant]
  6. AMOXICILLIN TRIHYDRATE [Concomitant]

REACTIONS (5)
  - ALANINE AMINOTRANSFERASE INCREASED [None]
  - ASPARTATE AMINOTRANSFERASE INCREASED [None]
  - BLOOD ALKALINE PHOSPHATASE INCREASED [None]
  - DRUG INEFFECTIVE [None]
  - GAMMA-GLUTAMYLTRANSFERASE INCREASED [None]
